FAERS Safety Report 7098515-3 (Version None)
Quarter: 2010Q4

REPORT INFORMATION
  Report Type: 
  Country: None (occurrence: None)
  Receive Date: 20101112
  Receipt Date: 20090909
  Transmission Date: 20110411
  Serious: No
  Sender: FDA-Public Use
  Company Number: US-KINGPHARMUSA00001-K200901108

PATIENT
  Sex: Female
  Weight: 68.027 kg

DRUGS (6)
  1. ALTACE [Suspect]
     Indication: HYPERTENSION
     Dosage: 20 MG, QD
     Route: 048
     Dates: start: 19790101, end: 20090801
  2. ALTACE [Suspect]
     Dosage: UNK
     Dates: start: 20090901
  3. NORVASC [Suspect]
     Indication: HYPERTENSION
     Dosage: 1.25 MG, QD
     Route: 048
     Dates: end: 20090101
  4. NORVASC [Suspect]
     Dosage: UNK
     Dates: start: 20090101
  5. INDAPAMIDE [Suspect]
     Indication: DIURETIC THERAPY
     Dosage: ^0.25 MG^ QD
     Route: 048
     Dates: end: 20090101
  6. INDAPAMIDE [Suspect]
     Dosage: UNK
     Dates: start: 20090101

REACTIONS (3)
  - ABDOMINAL DISCOMFORT [None]
  - NAUSEA [None]
  - RETCHING [None]
